FAERS Safety Report 7130846-0 (Version None)
Quarter: 2010Q4

REPORT INFORMATION
  Report Type: 
  Country: None (occurrence: None)
  Receive Date: 20101201
  Receipt Date: 20101121
  Transmission Date: 20110411
  Serious: Yes (Life-Threatening, Hospitalization)
  Sender: FDA-Public Use
  Company Number: IR-ROCHE-743861

PATIENT
  Age: 60 Year
  Sex: Female

DRUGS (4)
  1. AVASTIN [Suspect]
     Dosage: FORM: INFUSION
     Route: 042
     Dates: start: 20101101
  2. FLUOROURACIL [Concomitant]
     Route: 042
  3. OXALIPLATIN [Concomitant]
     Route: 042
  4. LEUCOVORIN CALCIUM [Concomitant]
     Dosage: DRUG NAME REPORTED AS : ^LOCOVERIN^
     Route: 042

REACTIONS (1)
  - DEPRESSED LEVEL OF CONSCIOUSNESS [None]
